FAERS Safety Report 10908696 (Version 1)
Quarter: 2015Q1

REPORT INFORMATION
  Report Type: Spontaneous
  Country: US (occurrence: None)
  Receive Date: 20150309
  Receipt Date: 20150309
  Transmission Date: 20150721
  Serious: No
  Sender: FDA-Public Use
  Company Number: None

PATIENT
  Age: 56 Year
  Sex: Female

DRUGS (13)
  1. BACLOFEN. [Concomitant]
     Active Substance: BACLOFEN
  2. PROGESTERONE. [Concomitant]
     Active Substance: PROGESTERONE
  3. CYMBALTA [Concomitant]
     Active Substance: DULOXETINE HYDROCHLORIDE
  4. AMPYRA [Concomitant]
     Active Substance: DALFAMPRIDINE
  5. CLIMARA [Concomitant]
     Active Substance: ESTRADIOL
  6. VAGIFEM [Concomitant]
     Active Substance: ESTRADIOL
  7. LAMOTRIGINE. [Concomitant]
     Active Substance: LAMOTRIGINE
  8. AMPYRA [Suspect]
     Active Substance: DALFAMPRIDINE
     Indication: MULTIPLE SCLEROSIS
     Route: 048
     Dates: start: 201303, end: 201304
  9. OMNIPAQUE [Concomitant]
     Active Substance: IOHEXOL
  10. PERCOCET [Concomitant]
     Active Substance: ACETAMINOPHEN\OXYCODONE HYDROCHLORIDE
  11. OXYCODONE [Concomitant]
     Active Substance: OXYCODONE
  12. PROZAC [Concomitant]
     Active Substance: FLUOXETINE HYDROCHLORIDE
  13. MODALINIL [Concomitant]

REACTIONS (2)
  - Gait disturbance [None]
  - Feeling abnormal [None]

NARRATIVE: CASE EVENT DATE: 20140715
